FAERS Safety Report 11420458 (Version 1)
Quarter: 2015Q3

REPORT INFORMATION
  Report Type: Spontaneous
  Country: US (occurrence: US)
  Receive Date: 20150826
  Receipt Date: 20150826
  Transmission Date: 20151125
  Serious: Yes (Hospitalization, Other)
  Sender: FDA-Public Use
  Company Number: US-TEVA-588783USA

PATIENT
  Age: 58 Year
  Sex: Female

DRUGS (12)
  1. AMLODIPINE BESYLATE. [Concomitant]
     Active Substance: AMLODIPINE BESYLATE
  2. ACETAMINOPHEN. [Concomitant]
     Active Substance: ACETAMINOPHEN
  3. LORAZEPAM. [Concomitant]
     Active Substance: LORAZEPAM
  4. EPOETIN ALFA [Concomitant]
     Active Substance: ERYTHROPOIETIN
  5. SIMETHICONE (DIMETHICONE) [Concomitant]
     Active Substance: DIMETHICONE
  6. FUROSEMIDE. [Concomitant]
     Active Substance: FUROSEMIDE
  7. SENNA [Concomitant]
     Active Substance: SENNA LEAF\SENNOSIDES\SENNOSIDES A AND B
  8. OXYCODONE [Concomitant]
     Active Substance: OXYCODONE
  9. MUPIROCIN. [Concomitant]
     Active Substance: MUPIROCIN
     Dosage: TWICE DAILY
  10. PAROXETINE HYDROCHLORIDE. [Concomitant]
     Active Substance: PAROXETINE HYDROCHLORIDE
  11. WARFARIN [Suspect]
     Active Substance: WARFARIN
     Indication: ANTICOAGULANT THERAPY
     Route: 065
  12. LEVOTHYROXINE SODIUM. [Concomitant]
     Active Substance: LEVOTHYROXINE SODIUM

REACTIONS (1)
  - Calciphylaxis [Recovered/Resolved]
